FAERS Safety Report 4402235-0 (Version None)
Quarter: 2004Q3

REPORT INFORMATION
  Report Type: 
  Country: None (occurrence: None)
  Receive Date: 20040720
  Receipt Date: 20040705
  Transmission Date: 20050211
  Serious: Yes (Life-Threatening)
  Sender: FDA-Public Use
  Company Number: PHBS2004NL08901

PATIENT
  Age: 73 Year
  Sex: Female

DRUGS (7)
  1. EXELON [Suspect]
     Indication: DEMENTIA
     Dosage: 1.5 MG, QID
     Route: 048
     Dates: start: 20040407, end: 20040601
  2. ACETAMINOPHEN [Concomitant]
     Route: 065
  3. NADROPARINA [Concomitant]
     Route: 065
  4. CLOZAPINE [Concomitant]
     Route: 065
  5. PANTOPRAZOLE [Concomitant]
     Route: 065
  6. NAPROXEN [Concomitant]
     Route: 065
  7. LACTILOL [Concomitant]
     Route: 065

REACTIONS (6)
  - COLONIC PSEUDO-OBSTRUCTION [None]
  - DEHYDRATION [None]
  - DIVERTICULUM INTESTINAL [None]
  - ELECTROLYTE IMBALANCE [None]
  - INTESTINAL POLYP [None]
  - OLIGURIA [None]
